FAERS Safety Report 4879917-X (Version None)
Quarter: 2006Q1

REPORT INFORMATION
  Report Type: 
  Country: None (occurrence: None)
  Receive Date: 20060113
  Receipt Date: 20051005
  Transmission Date: 20060701
  Serious: Yes (Hospitalization)
  Sender: FDA-Public Use
  Company Number: US-MERCK-0510USA04698

PATIENT
  Age: 53 Year
  Sex: Female
  Weight: 102 kg

DRUGS (1)
  1. VIOXX [Suspect]
     Route: 048
     Dates: start: 19990101

REACTIONS (10)
  - AMNESIA [None]
  - ASTHENIA [None]
  - BIPOLAR DISORDER [None]
  - DEPRESSION [None]
  - DRUG HYPERSENSITIVITY [None]
  - HYDROCEPHALUS [None]
  - HYPERSENSITIVITY [None]
  - INTRACRANIAL ANEURYSM [None]
  - MIGRAINE [None]
  - TRIGGER FINGER [None]
